FAERS Safety Report 13993728 (Version 5)
Quarter: 2017Q4

REPORT INFORMATION
  Report Type: Report from Study
  Country: TW (occurrence: TW)
  Receive Date: 20170920
  Receipt Date: 20171220
  Transmission Date: 20180321
  Serious: Yes (Death, Hospitalization, Other)
  Sender: FDA-Public Use
  Company Number: TW-INCYTE CORPORATION-2017IN007896

PATIENT

DRUGS (6)
  1. ERTAPENEM. [Suspect]
     Active Substance: ERTAPENEM SODIUM
     Route: 065
  2. JAKAVI [Suspect]
     Active Substance: RUXOLITINIB
     Indication: PRIMARY MYELOFIBROSIS
     Dosage: UNK
     Route: 048
     Dates: start: 20161227
  3. JAKAVI [Suspect]
     Active Substance: RUXOLITINIB
     Dosage: 5 MG, BID
     Route: 048
     Dates: start: 20160926, end: 20171120
  4. ERTAPENEM. [Suspect]
     Active Substance: ERTAPENEM SODIUM
     Route: 065
  5. JAKAVI [Suspect]
     Active Substance: RUXOLITINIB
     Dosage: 5 MG, BID
     Route: 048
     Dates: start: 20170711, end: 20170814
  6. ERTAPENEM. [Suspect]
     Active Substance: ERTAPENEM SODIUM
     Indication: PRODUCT USED FOR UNKNOWN INDICATION
     Route: 065

REACTIONS (36)
  - Supraventricular extrasystoles [Recovering/Resolving]
  - Lung disorder [Recovering/Resolving]
  - Hypokalaemia [Recovering/Resolving]
  - Bandaemia [Recovering/Resolving]
  - Thrombocytopenia [Recovering/Resolving]
  - Haemodynamic instability [Unknown]
  - Renal disorder [Recovering/Resolving]
  - Urinary tract infection [Recovering/Resolving]
  - C-reactive protein increased [Recovering/Resolving]
  - Salmonella bacteraemia [Recovering/Resolving]
  - Bradycardia [Fatal]
  - Renal impairment [Recovering/Resolving]
  - Skin lesion [Recovering/Resolving]
  - Normocytic anaemia [Recovering/Resolving]
  - Apnoea [Fatal]
  - Leukocytosis [Recovering/Resolving]
  - Splenomegaly [Recovering/Resolving]
  - Somnolence [Recovering/Resolving]
  - Blood alkaline phosphatase increased [Unknown]
  - Occult blood positive [Unknown]
  - Pyrexia [Fatal]
  - Pathogen resistance [Recovering/Resolving]
  - Blood creatinine increased [Recovering/Resolving]
  - White blood cell count increased [Unknown]
  - Haematoma [Unknown]
  - Interstitial lung disease [Fatal]
  - Asthenia [Recovering/Resolving]
  - Dizziness [Recovering/Resolving]
  - Ventricular internal diameter abnormal [Recovering/Resolving]
  - Abscess [Recovering/Resolving]
  - Gait inability [Recovering/Resolving]
  - Hypokinesia [Recovering/Resolving]
  - Decreased appetite [Recovering/Resolving]
  - Pyuria [Recovering/Resolving]
  - Diarrhoea [Unknown]
  - Dysphagia [Unknown]

NARRATIVE: CASE EVENT DATE: 20170812
